FAERS Safety Report 8945895 (Version 4)
Quarter: 2014Q4

REPORT INFORMATION
  Report Type: Report from Study
  Country: US (occurrence: US)
  Receive Date: 20121205
  Receipt Date: 20141009
  Transmission Date: 20150529
  Serious: Yes (Life-Threatening, Disabling, Other)
  Sender: FDA-Public Use
  Company Number: PHEH2012US023811

PATIENT
  Sex: Female

DRUGS (2)
  1. DIOVAN [Suspect]
     Active Substance: VALSARTAN
     Indication: PRODUCT USED FOR UNKNOWN INDICATION
     Dosage: 80 MG, UNK
     Route: 048
  2. DIOVAN [Suspect]
     Active Substance: VALSARTAN
     Dosage: 40 MG, QD
     Route: 048

REACTIONS (19)
  - Blindness [Unknown]
  - Oedema [Unknown]
  - Seizure [Unknown]
  - Tendon rupture [Unknown]
  - Neuropathy peripheral [Unknown]
  - Paralysis [Unknown]
  - Condition aggravated [Unknown]
  - Joint injury [Unknown]
  - Neurotoxicity [Unknown]
  - Brain injury [Unknown]
  - Rotator cuff syndrome [Unknown]
  - Apparent death [Unknown]
  - Toxicity to various agents [Unknown]
  - Tendonitis [Unknown]
  - Malaise [Unknown]
  - Sleep disorder [Unknown]
  - Musculoskeletal stiffness [Unknown]
  - Diabetes mellitus [Unknown]
  - Inflammation [Unknown]
